FAERS Safety Report 7846467-8 (Version None)
Quarter: 2011Q4

REPORT INFORMATION
  Report Type: 
  Country: None (occurrence: None)
  Receive Date: 20111025
  Receipt Date: 20111025
  Transmission Date: 20120403
  Serious: Yes (Other)
  Sender: FDA-Public Use
  Company Number: None

PATIENT
  Age: 7 Year
  Sex: Male
  Weight: 30.844 kg

DRUGS (1)
  1. SINGULAIR [Suspect]
     Indication: ASTHMA
     Dosage: 5MG
     Route: 048
     Dates: start: 20110902, end: 20111023

REACTIONS (6)
  - ABDOMINAL PAIN [None]
  - AGITATION [None]
  - TREMOR [None]
  - EXCESSIVE EYE BLINKING [None]
  - TIC [None]
  - HEADACHE [None]
